FAERS Safety Report 4458262-0 (Version None)
Quarter: 2004Q3

REPORT INFORMATION
  Report Type: 
  Country: None (occurrence: None)
  Receive Date: 20040924
  Receipt Date: 20040914
  Transmission Date: 20050211
  Serious: Yes (Death)
  Sender: FDA-Public Use
  Company Number: US-JNJFOC-20040404397

PATIENT
  Sex: Female
  Weight: 61.69 kg

DRUGS (7)
  1. DURAGESIC [Suspect]
     Route: 062
     Dates: end: 20040313
  2. IRESSA [Concomitant]
     Route: 049
     Dates: start: 20040212, end: 20040313
  3. PERCOCET [Concomitant]
     Route: 049
  4. PERCOCET [Concomitant]
     Indication: PAIN
     Dosage: 5/325 MG, 1 TO 2 EVERY 6 HOURS
     Route: 049
  5. NEURONTIN [Concomitant]
     Indication: PAIN
     Route: 049
     Dates: start: 20030710, end: 20040313
  6. LIDODERM [Concomitant]
     Indication: DRUG USE FOR UNKNOWN INDICATION
     Route: 062
     Dates: start: 20040212, end: 20040313
  7. PREVACID [Concomitant]
     Indication: DRUG USE FOR UNKNOWN INDICATION
     Route: 049
     Dates: start: 20040212, end: 20040313

REACTIONS (1)
  - DEATH [None]
